FAERS Safety Report 12435884 (Version 4)
Quarter: 2016Q4

REPORT INFORMATION
  Report Type: Spontaneous
  Country: GB (occurrence: GB)
  Receive Date: 20160604
  Receipt Date: 20161118
  Transmission Date: 20170207
  Serious: Yes (Death, Life-Threatening, Hospitalization)
  Sender: FDA-Public Use
  Company Number: GB-ACCORD-041062

PATIENT
  Age: 18 Year
  Sex: Male

DRUGS (3)
  1. TRAMADOL/TRAMADOL HYDROCHLORIDE [Suspect]
     Active Substance: TRAMADOL HYDROCHLORIDE
     Dosage: A POST-OPERATIVE PAINKILLER
  2. LYRICA [Suspect]
     Active Substance: PREGABALIN
     Dosage: AS A DIABETES DRUG
  3. DIAZEPAM. [Suspect]
     Active Substance: DIAZEPAM

REACTIONS (6)
  - Intentional product misuse [Fatal]
  - Prescription drug used without a prescription [Fatal]
  - Substance use [Fatal]
  - Accidental overdose [Fatal]
  - Coma [Fatal]
  - Myocardial infarction [Fatal]
